FAERS Safety Report 17686286 (Version 1)
Quarter: 2020Q2

REPORT INFORMATION
  Report Type: Spontaneous
  Country: US (occurrence: US)
  Receive Date: 20200420
  Receipt Date: 20200420
  Transmission Date: 20200714
  Serious: Yes (Hospitalization, Other)
  Sender: FDA-Public Use
  Company Number: US-009507513-2004USA003971

PATIENT
  Sex: Male

DRUGS (7)
  1. APOKYN [Suspect]
     Active Substance: APOMORPHINE HYDROCHLORIDE
     Dosage: UNK, 5 TIMES PER DAY
     Dates: start: 202003, end: 20200322
  2. SINEMET [Suspect]
     Active Substance: CARBIDOPA\LEVODOPA
     Dosage: UNK
     Route: 048
     Dates: end: 202003
  3. SINEMET [Suspect]
     Active Substance: CARBIDOPA\LEVODOPA
     Indication: PARKINSON^S DISEASE
     Dosage: UNK UNK, 5 TIMES PER DAY
     Route: 048
     Dates: start: 202003
  4. APOKYN [Suspect]
     Active Substance: APOMORPHINE HYDROCHLORIDE
     Dosage: UNK
     Dates: end: 202003
  5. ROPINIROLE. [Concomitant]
     Active Substance: ROPINIROLE
     Dosage: UNK
     Dates: end: 20200305
  6. AZILECT [Concomitant]
     Active Substance: RASAGILINE MESYLATE
     Dosage: UNK
     Dates: end: 20200305
  7. ARTANE [Concomitant]
     Active Substance: TRIHEXYPHENIDYL HYDROCHLORIDE
     Dosage: UNK
     Dates: end: 20200305

REACTIONS (9)
  - Suicidal ideation [Unknown]
  - Feeling cold [Not Recovered/Not Resolved]
  - Delirium [Unknown]
  - Hallucination [Unknown]
  - Musculoskeletal stiffness [Not Recovered/Not Resolved]
  - Psychotic disorder [Recovering/Resolving]
  - Self-injurious ideation [Unknown]
  - Drug ineffective [Unknown]
  - Delusion [Unknown]

NARRATIVE: CASE EVENT DATE: 2020
